FAERS Safety Report 8870124 (Version 1)
Quarter: 2012Q4

REPORT INFORMATION
  Report Type: 
  Country: US (occurrence: US)
  Receive Date: 20121026
  Receipt Date: 20121026
  Transmission Date: 20130627
  Serious: No
  Sender: FDA-Public Use
  Company Number: US-AMGEN-USASP2012043801

PATIENT
  Age: 60 Year
  Sex: Female
  Weight: 47.62 kg

DRUGS (10)
  1. ENBREL [Suspect]
     Indication: PRODUCT USED FOR UNKNOWN INDICATION
     Dosage: 50 mg, 2 times/wk
     Route: 058
  2. CENTRUM SILVER                     /06011601/ [Concomitant]
     Dosage: UNK
  3. COMBIGAN [Concomitant]
     Dosage: 0.205 UNK, UNK
  4. PREDNISONE [Concomitant]
     Dosage: 2.5 mg, UNK
  5. AZOPT [Concomitant]
     Dosage: UNK
  6. FOLIC ACID [Concomitant]
     Dosage: 1 mg, UNK
  7. LEVOTHYROXIN [Concomitant]
     Dosage: 100 mug, UNK
  8. METHOTREXATE [Concomitant]
     Dosage: 50 UNK, UNK
  9. CRANBERRY                          /01512301/ [Concomitant]
     Dosage: UNK
  10. PROBIOTIC [Concomitant]
     Dosage: UNK

REACTIONS (1)
  - Urinary tract infection [Unknown]
